FAERS Safety Report 5507683-3 (Version None)
Quarter: 2007Q4

REPORT INFORMATION
  Report Type: 
  Country: None (occurrence: None)
  Receive Date: 20071106
  Receipt Date: 20071102
  Transmission Date: 20080405
  Serious: Yes (Hospitalization)
  Sender: FDA-Public Use
  Company Number: B0485348A

PATIENT
  Age: 10 Month
  Sex: Male
  Weight: 9.5 kg

DRUGS (4)
  1. CLAMOXYL [Suspect]
     Route: 048
     Dates: start: 20070803, end: 20070806
  2. DOLIPRANE [Suspect]
     Route: 065
     Dates: start: 20070803, end: 20070806
  3. VENTOLIN [Concomitant]
     Indication: BRONCHIOLITIS
     Route: 065
     Dates: start: 20070701
  4. FLIXOTIDE [Concomitant]
     Indication: BRONCHIOLITIS
     Route: 065
     Dates: start: 20070701

REACTIONS (8)
  - DERMATITIS EXFOLIATIVE [None]
  - GENITAL ERYTHEMA [None]
  - RASH [None]
  - RASH PRURITIC [None]
  - SCAR [None]
  - SKIN DISORDER [None]
  - SKIN LESION [None]
  - TOXIC EPIDERMAL NECROLYSIS [None]
